FAERS Safety Report 24397286 (Version 1)
Quarter: 2024Q4

REPORT INFORMATION
  Report Type: Spontaneous
  Country: US (occurrence: US)
  Receive Date: 20241004
  Receipt Date: 20241004
  Transmission Date: 20250114
  Serious: No
  Sender: SANOFI AVENTIS
  Company Number: US-SA-2024SA285668

PATIENT
  Age: 53 Year
  Sex: Male

DRUGS (3)
  1. ELITEK [Suspect]
     Active Substance: RASBURICASE
     Indication: Gout
     Dosage: 6MG,QD
     Route: 042
  2. ELITEK [Suspect]
     Active Substance: RASBURICASE
     Indication: Obesity
  3. ELITEK [Suspect]
     Active Substance: RASBURICASE
     Indication: Osteoarthritis

REACTIONS (1)
  - Off label use [Unknown]
